FAERS Safety Report 8098386-2 (Version None)
Quarter: 2012Q1

REPORT INFORMATION
  Report Type: 
  Country: None (occurrence: None)
  Receive Date: 20120131
  Receipt Date: 20120130
  Transmission Date: 20120608
  Serious: Yes (Hospitalization)
  Sender: FDA-Public Use
  Company Number: AU-JNJFOC-20120108953

PATIENT
  Sex: Male
  Weight: 64.1 kg

DRUGS (5)
  1. PREDNISOLONE [Suspect]
     Indication: PROSTATE CANCER METASTATIC
     Route: 065
     Dates: start: 20111208
  2. ABIRATERONE ACETATE [Suspect]
     Route: 048
  3. ABIRATERONE ACETATE [Suspect]
     Indication: PROSTATE CANCER METASTATIC
     Route: 048
     Dates: start: 20111208
  4. LEUPROLIDE ACETATE [Concomitant]
     Indication: HORMONE THERAPY
     Route: 065
     Dates: start: 20080201
  5. ZOMETA [Concomitant]
     Indication: CHEMOTHERAPY
     Route: 065
     Dates: start: 20100408

REACTIONS (1)
  - DYSPNOEA [None]
